FAERS Safety Report 11006429 (Version 1)
Quarter: 2015Q2

REPORT INFORMATION
  Report Type: Spontaneous
  Country: US (occurrence: US)
  Receive Date: 20150409
  Receipt Date: 20150409
  Transmission Date: 20150821
  Serious: No
  Sender: FDA-Public Use
  Company Number: US-ALLERGAN-1416472US

PATIENT
  Age: 60 Year
  Sex: Female

DRUGS (7)
  1. TRAMADOL [Concomitant]
     Active Substance: TRAMADOL
     Indication: PRODUCT USED FOR UNKNOWN INDICATION
  2. MOBIC [Concomitant]
     Active Substance: MELOXICAM
     Indication: PRODUCT USED FOR UNKNOWN INDICATION
  3. TRAZODONE [Concomitant]
     Active Substance: TRAZODONE HYDROCHLORIDE
     Dosage: UNK
  4. TYLENOL [Concomitant]
     Active Substance: ACETAMINOPHEN
     Indication: PRODUCT USED FOR UNKNOWN INDICATION
  5. LEXAPRO [Concomitant]
     Active Substance: ESCITALOPRAM OXALATE
  6. LATISSE [Suspect]
     Active Substance: BIMATOPROST
     Indication: GROWTH OF EYELASHES
     Dosage: 2 GTT, QHS
     Route: 061
     Dates: start: 201403
  7. LYRICA [Concomitant]
     Active Substance: PREGABALIN
     Indication: PRODUCT USED FOR UNKNOWN INDICATION

REACTIONS (10)
  - Blepharitis [Recovered/Resolved]
  - Erythema of eyelid [Recovered/Resolved]
  - Eyelid thickening [Recovered/Resolved]
  - Eyelid disorder [Recovered/Resolved]
  - Eyelid oedema [Recovered/Resolved]
  - Acne [Recovered/Resolved]
  - Lacrimation decreased [Recovered/Resolved]
  - Eye pruritus [Recovered/Resolved]
  - Rash pustular [Recovered/Resolved]
  - Sebaceous gland disorder [Recovered/Resolved]

NARRATIVE: CASE EVENT DATE: 201407
